FAERS Safety Report 25008782 (Version 1)
Quarter: 2025Q1

REPORT INFORMATION
  Report Type: Spontaneous
  Country: JP (occurrence: JP)
  Receive Date: 20250225
  Receipt Date: 20250225
  Transmission Date: 20250409
  Serious: Yes (Death, Other)
  Sender: CLINIGEN
  Company Number: JP-CLINIGEN-CLI2025000012

PATIENT

DRUGS (2)
  1. FOSCARNET SODIUM [Suspect]
     Active Substance: FOSCARNET SODIUM
     Indication: Pneumonia cytomegaloviral
     Route: 042
  2. FOSCARNET SODIUM [Suspect]
     Active Substance: FOSCARNET SODIUM
     Route: 042

REACTIONS (8)
  - Pulmonary haemorrhage [Fatal]
  - Pneumonitis [Not Recovered/Not Resolved]
  - Autoimmune disorder [Recovered/Resolved]
  - Status epilepticus [Recovered/Resolved]
  - Cytomegalovirus viraemia [Not Recovered/Not Resolved]
  - Drug resistance [Not Recovered/Not Resolved]
  - Treatment failure [Not Recovered/Not Resolved]
  - Off label use [None]
